FAERS Safety Report 17531119 (Version 1)
Quarter: 2020Q1

REPORT INFORMATION
  Report Type: Spontaneous
  Country: US (occurrence: US)
  Receive Date: 20200311
  Receipt Date: 20200311
  Transmission Date: 20200409
  Serious: No
  Sender: FDA-Public Use
  Company Number: US-ASTRAZENECA-2020SE33717

PATIENT
  Age: 76 Year
  Sex: Male

DRUGS (2)
  1. DUOPA [Concomitant]
     Active Substance: CARBIDOPA\LEVODOPA
  2. SEROQUEL [Suspect]
     Active Substance: QUETIAPINE FUMARATE
     Indication: PARKINSON^S DISEASE
     Route: 048
     Dates: start: 2017, end: 201912

REACTIONS (3)
  - Gait disturbance [Recovering/Resolving]
  - Insomnia [Not Recovered/Not Resolved]
  - Hallucination [Not Recovered/Not Resolved]

NARRATIVE: CASE EVENT DATE: 201909
